FAERS Safety Report 8750612 (Version 2)
Quarter: 2012Q4

REPORT INFORMATION
  Report Type: Spontaneous
  Country: FR (occurrence: None)
  Receive Date: 20120813
  Receipt Date: 20120820
  Transmission Date: 20130627
  Serious: No
  Sender: FDA-Public Use
  Company Number: 2012033024

PATIENT
  Age: 81 Year
  Sex: Female

DRUGS (1)
  1. HUMAN IMMUNOGLOBULIN G [Suspect]
     Indication: INTERSTITIAL GRANULOMATOUS DERMATITIS

REACTIONS (4)
  - Renal failure [None]
  - Off label use [None]
  - Pruritus [None]
  - Skin lesion [None]
